FAERS Safety Report 5306068-2 (Version None)
Quarter: 2007Q2

REPORT INFORMATION
  Report Type: 
  Country: None (occurrence: None)
  Receive Date: 20070424
  Receipt Date: 20060822
  Transmission Date: 20071010
  Serious: No
  Sender: FDA-Public Use
  Company Number: US-BRISTOL-MYERS SQUIBB COMPANY-13484704

PATIENT
  Sex: Female
  Weight: 65 kg

DRUGS (6)
  1. HYDREA [Suspect]
     Indication: MYELOFIBROSIS
     Dosage: 2 500 MG TABLETS DAILY X 1 DAY, THEN 1 500 MG TABLET X 2 DAYS, THEN REPEAT
     Dates: start: 20040201
  2. GAVISCON [Concomitant]
  3. MYLANTA [Concomitant]
  4. LOTREL [Concomitant]
  5. PREVACID [Concomitant]
  6. ZOCOR [Concomitant]

REACTIONS (2)
  - GASTRITIS [None]
  - NAUSEA [None]
